FAERS Safety Report 9369052 (Version 1)
Quarter: 2013Q2

REPORT INFORMATION
  Report Type: Spontaneous
  Country: GR (occurrence: GR)
  Receive Date: 20130626
  Receipt Date: 20130626
  Transmission Date: 20140414
  Serious: Yes (Other)
  Sender: FDA-Public Use
  Company Number: PHHY2013GR064973

PATIENT
  Sex: Female

DRUGS (6)
  1. TASIGNA [Suspect]
     Indication: CHRONIC MYELOID LEUKAEMIA
     Dosage: 200 MG
     Route: 048
  2. AMLOPEN [Concomitant]
     Dosage: 5 MG
  3. LIPITOR [Concomitant]
     Dosage: 10 MG
  4. ZYLAPOUR [Concomitant]
  5. PENRAZOL [Concomitant]
  6. RASILEZ [Concomitant]
     Dosage: 300 MG

REACTIONS (1)
  - Platelet count increased [Unknown]
